FAERS Safety Report 18654781 (Version 1)
Quarter: 2020Q4

REPORT INFORMATION
  Report Type: Spontaneous
  Country: CZ (occurrence: CZ)
  Receive Date: 20201223
  Receipt Date: 20201223
  Transmission Date: 20210114
  Serious: Yes (Other)
  Sender: FDA-Public Use
  Company Number: CZ-GLAXOSMITHKLINE-CZ2020EME253165

PATIENT
  Age: 55 Year
  Sex: Male
  Weight: 92 kg

DRUGS (1)
  1. ACITRETIN. [Suspect]
     Active Substance: ACITRETIN
     Indication: PSORIASIS
     Dosage: 35 MG, QD (35 MG, 1 IN 1 D) 3.5 MONTHS
     Route: 048
     Dates: start: 2018

REACTIONS (10)
  - Paronychia [Recovered/Resolved]
  - Scrotal erythema [Recovered/Resolved]
  - Burning sensation [Recovered/Resolved]
  - Erythema [Recovered/Resolved]
  - Alopecia [Recovered/Resolved]
  - Blood cholesterol increased [Recovered/Resolved]
  - Skin exfoliation [Recovered/Resolved]
  - Lip dry [Recovered/Resolved]
  - Dry skin [Recovered/Resolved]
  - Sticky skin [Recovered/Resolved]

NARRATIVE: CASE EVENT DATE: 2018
